FAERS Safety Report 6524443 (Version 2)
Quarter: 2019Q1

REPORT INFORMATION
  Report Type: Spontaneous
  Country: GB (occurrence: GB)
  Receive Date: 20080111
  Receipt Date: 20190220
  Transmission Date: 20190418
  Serious: Yes (Other)
  Sender: FDA-Public Use
  Company Number: GB-PFIZER INC-2008001235

PATIENT
  Age: 54 Year
  Sex: Female

DRUGS (1)
  1. CHAMPIX [Suspect]
     Active Substance: VARENICLINE TARTRATE
     Indication: SMOKING CESSATION THERAPY
     Dosage: 0.5 MG, 2X/DAY
     Route: 048
     Dates: start: 20070426, end: 200712

REACTIONS (5)
  - Impatience [Recovered/Resolved]
  - Depressed mood [Recovered/Resolved]
  - Nausea [Recovered/Resolved]
  - Aggression [Recovered/Resolved]
  - Crying [Recovered/Resolved]
